FAERS Safety Report 6768743-2 (Version None)
Quarter: 2010Q2

REPORT INFORMATION
  Report Type: 
  Country: None (occurrence: None)
  Receive Date: 20100614
  Receipt Date: 20100607
  Transmission Date: 20101027
  Serious: Yes (Hospitalization, Other)
  Sender: FDA-Public Use
  Company Number: CA-ABBOTT-09P-028-0615706-00

PATIENT
  Sex: Female
  Weight: 81.72 kg

DRUGS (8)
  1. HUMIRA [Suspect]
     Indication: RHEUMATOID ARTHRITIS
     Route: 058
     Dates: start: 20090917, end: 20100313
  2. LEVOTHYROXINE SODIUM [Concomitant]
     Indication: DRUG USE FOR UNKNOWN INDICATION
  3. PREDNISONE [Concomitant]
     Indication: DRUG USE FOR UNKNOWN INDICATION
  4. SULFASALAZINE [Concomitant]
     Indication: DRUG USE FOR UNKNOWN INDICATION
     Dosage: 2 TABS
     Dates: end: 20100325
  5. URSODIOL [Concomitant]
     Indication: LIVER DISORDER
  6. VITAMINS [Concomitant]
     Indication: DRUG USE FOR UNKNOWN INDICATION
  7. CARBOCAL [Concomitant]
     Indication: MINERAL SUPPLEMENTATION
  8. CELEBREX [Concomitant]
     Indication: PAIN

REACTIONS (5)
  - OVARIAN DISORDER [None]
  - VAGINAL DYSPLASIA [None]
  - VAGINAL HAEMORRHAGE [None]
  - WOUND [None]
  - WOUND SECRETION [None]
